FAERS Safety Report 5413281-2 (Version None)
Quarter: 2007Q3

REPORT INFORMATION
  Report Type: 
  Country: None (occurrence: None)
  Receive Date: 20070716
  Receipt Date: 20070521
  Transmission Date: 20080115
  Serious: Yes (Hospitalization)
  Sender: FDA-Public Use
  Company Number: PR-2007-018561

PATIENT
  Age: 39 Year
  Sex: Female
  Weight: 51 kg

DRUGS (1)
  1. YAZ [Suspect]
     Indication: ENDOMETRIOSIS
     Dosage: 1 TAB(S), 1X/DAY, ORAL
     Route: 048
     Dates: start: 20060201, end: 20061216

REACTIONS (1)
  - THROMBOPHLEBITIS [None]
